FAERS Safety Report 8226904-X (Version None)
Quarter: 2012Q1

REPORT INFORMATION
  Report Type: 
  Country: None (occurrence: None)
  Receive Date: 20120322
  Receipt Date: 20120312
  Transmission Date: 20120608
  Serious: Yes (Hospitalization)
  Sender: FDA-Public Use
  Company Number: US-BAYER-2011-097347

PATIENT
  Age: 19 Year
  Sex: Female
  Weight: 100 kg

DRUGS (5)
  1. ZYRTEC [Concomitant]
     Indication: MULTIPLE ALLERGIES
     Route: 048
  2. YAZ [Suspect]
     Dosage: UNK
     Dates: start: 20070601, end: 20090401
  3. YASMIN [Suspect]
     Dosage: UNK
     Dates: start: 20070601, end: 20090401
  4. MIDRIN [Concomitant]
     Route: 048
  5. SEASONIQUE [Concomitant]
     Indication: MENSTRUATION IRREGULAR
     Dosage: UNK
     Dates: start: 20090801, end: 20110701

REACTIONS (3)
  - PAIN [None]
  - GALLBLADDER DISORDER [None]
  - CHOLECYSTITIS ACUTE [None]
